FAERS Safety Report 8920108 (Version 2)
Quarter: 2013Q1

REPORT INFORMATION
  Report Type: Spontaneous
  Country: DE (occurrence: DE)
  Receive Date: 20121120
  Receipt Date: 20130204
  Transmission Date: 20140127
  Serious: Yes (Hospitalization, Other)
  Sender: FDA-Public Use
  Company Number: DE-AMGEN-DEUSP2012073807

PATIENT
  Age: 72 Year
  Sex: Male
  Weight: 77 kg

DRUGS (2)
  1. ENBREL [Suspect]
     Indication: ANKYLOSING SPONDYLITIS
     Dosage: 25 MG, EVERY 14 DAYS
     Dates: start: 2005
  2. ENBREL [Suspect]
     Dosage: 25 MG, WEEKLY

REACTIONS (3)
  - Rheumatoid arthritis [Recovering/Resolving]
  - Arthritis [Unknown]
  - Drug ineffective [Recovering/Resolving]
